FAERS Safety Report 20165328 (Version 1)
Quarter: 2021Q4

REPORT INFORMATION
  Report Type: Spontaneous
  Country: NL (occurrence: NL)
  Receive Date: 20211209
  Receipt Date: 20211209
  Transmission Date: 20220303
  Serious: Yes (Other)
  Sender: FDA-Public Use
  Company Number: NL-MYLANLABS-2021M1090180

PATIENT
  Age: 35 Year
  Sex: Female

DRUGS (1)
  1. CITALOPRAM [Suspect]
     Active Substance: CITALOPRAM HYDROBROMIDE
     Indication: Panic disorder
     Dosage: 20 MILLIGRAM, QD
     Route: 065

REACTIONS (4)
  - Weight increased [Unknown]
  - Abnormal dreams [Unknown]
  - Loss of libido [Unknown]
  - Drug withdrawal syndrome [Recovered/Resolved]
